FAERS Safety Report 7829294-7 (Version None)
Quarter: 2011Q4

REPORT INFORMATION
  Report Type: 
  Country: None (occurrence: None)
  Receive Date: 20111020
  Receipt Date: 20111012
  Transmission Date: 20120403
  Serious: Yes (Other)
  Sender: FDA-Public Use
  Company Number: US-CELGENEUS-163-21880-11071049

PATIENT
  Sex: Female

DRUGS (8)
  1. REVLIMID [Suspect]
     Dosage: 15 MILLIGRAM
     Route: 048
     Dates: start: 20110101, end: 20110704
  2. REVLIMID [Suspect]
     Dosage: 10MG-15MG
     Route: 048
     Dates: start: 20110701, end: 20110824
  3. REVLIMID [Suspect]
     Indication: MULTIPLE MYELOMA
     Dosage: 25 MILLIGRAM
     Route: 048
     Dates: start: 20101001
  4. PRILOSEC [Concomitant]
     Dosage: 20 MILLIGRAM
     Route: 065
  5. RANITIDINE [Concomitant]
     Dosage: 150 MILLIGRAM
     Route: 065
  6. REVLIMID [Suspect]
     Dosage: 15 MILLIGRAM
     Route: 048
     Dates: start: 20110921, end: 20111012
  7. ARANESP [Concomitant]
     Dosage: 100 MICROGRAM
     Route: 058
  8. LEVOTHYROXINE SODIUM [Concomitant]
     Indication: THYROID DISORDER
     Dosage: 88 MICROGRAM
     Route: 065

REACTIONS (4)
  - NEUTROPENIA [None]
  - DIZZINESS [None]
  - OPTIC NEURITIS [None]
  - WHITE BLOOD CELL COUNT DECREASED [None]
